FAERS Safety Report 8160467-2 (Version None)
Quarter: 2012Q1

REPORT INFORMATION
  Report Type: 
  Country: None (occurrence: None)
  Receive Date: 20120223
  Receipt Date: 20120213
  Transmission Date: 20120608
  Serious: Yes (Other)
  Sender: FDA-Public Use
  Company Number: US-ABBOTT-09P-163-0570227-00

PATIENT
  Sex: Female
  Weight: 54.48 kg

DRUGS (15)
  1. HUMIRA [Suspect]
     Dates: start: 20100701
  2. HUMIRA [Suspect]
     Dates: start: 20091101, end: 20100601
  3. IRON [Concomitant]
     Indication: PRODUCT USED FOR UNKNOWN INDICATION
  4. FLUCONAZOLE [Concomitant]
     Indication: PRODUCT USED FOR UNKNOWN INDICATION
     Dates: start: 20090909
  5. CELEBREX [Concomitant]
     Indication: PRODUCT USED FOR UNKNOWN INDICATION
  6. HUMIRA [Suspect]
     Indication: COLITIS ULCERATIVE
     Dates: start: 20070201, end: 20070201
  7. HUMIRA [Suspect]
     Indication: CROHN'S DISEASE
     Dosage: 80MG; DAY 22
  8. QUESTRAN [Concomitant]
     Indication: PRODUCT USED FOR UNKNOWN INDICATION
  9. FLONASE [Concomitant]
     Indication: PRODUCT USED FOR UNKNOWN INDICATION
  10. ASACOL [Concomitant]
     Indication: PRODUCT USED FOR UNKNOWN INDICATION
  11. ALLEGRA [Concomitant]
     Indication: PRODUCT USED FOR UNKNOWN INDICATION
     Dosage: DAILY
  12. HUMIRA [Suspect]
     Dosage: DAY 29; Q OTHER WEEK
  13. HUMIRA [Suspect]
     Dates: start: 20070301, end: 20091101
  14. ACIPHEX [Concomitant]
     Indication: PRODUCT USED FOR UNKNOWN INDICATION
  15. FOLIC ACID [Concomitant]
     Indication: PRODUCT USED FOR UNKNOWN INDICATION

REACTIONS (28)
  - PNEUMONIA PRIMARY ATYPICAL [None]
  - INFECTION [None]
  - ANTINUCLEAR ANTIBODY INCREASED [None]
  - ABDOMINAL PAIN [None]
  - FEMALE GENITAL TRACT FISTULA [None]
  - SKIN ULCER [None]
  - FIBROMYALGIA [None]
  - RASH [None]
  - OESOPHAGEAL CANDIDIASIS [None]
  - DRUG INEFFECTIVE [None]
  - ARTHRALGIA [None]
  - DIARRHOEA HAEMORRHAGIC [None]
  - ABDOMINAL PAIN UPPER [None]
  - FUNGAL INFECTION [None]
  - FATIGUE [None]
  - FEELING ABNORMAL [None]
  - AMNESIA [None]
  - IMPAIRED HEALING [None]
  - PNEUMONIA [None]
  - THROAT IRRITATION [None]
  - PARAESTHESIA [None]
  - HEADACHE [None]
  - VULVOVAGINAL MYCOTIC INFECTION [None]
  - DRY SKIN [None]
  - DYSPNOEA [None]
  - FISTULA [None]
  - DEPRESSION [None]
  - SKIN FISSURES [None]
